FAERS Safety Report 11238272 (Version 5)
Quarter: 2016Q3

REPORT INFORMATION
  Report Type: Spontaneous
  Country: CN (occurrence: CN)
  Receive Date: 20150704
  Receipt Date: 20160719
  Transmission Date: 20161109
  Serious: Yes (Life-Threatening, Hospitalization, Other)
  Sender: FDA-Public Use
  Company Number: CN-SUN PHARMACEUTICAL INDUSTRIES LTD-2015R1-099619

PATIENT
  Age: 61 Year
  Sex: Male

DRUGS (1)
  1. ASPIRIN. [Suspect]
     Active Substance: ASPIRIN
     Indication: PYREXIA
     Dosage: UNK
     Route: 048
     Dates: start: 200709

REACTIONS (10)
  - Klebsiella infection [Unknown]
  - Oliguria [Unknown]
  - Peptic ulcer [Unknown]
  - Pancytopenia [Unknown]
  - Jaundice cholestatic [Recovered/Resolved]
  - Multiple organ dysfunction syndrome [Recovering/Resolving]
  - Upper gastrointestinal haemorrhage [Unknown]
  - Pancreatitis acute [Recovering/Resolving]
  - Pneumonia [Unknown]
  - Overdose [Unknown]

NARRATIVE: CASE EVENT DATE: 200709
